FAERS Safety Report 19483206 (Version 3)
Quarter: 2022Q1

REPORT INFORMATION
  Report Type: Spontaneous
  Country: JP (occurrence: JP)
  Receive Date: 20210701
  Receipt Date: 20220131
  Transmission Date: 20220424
  Serious: Yes (Death, Hospitalization, Other)
  Sender: FDA-Public Use
  Company Number: JP-MSD-M2021-15567

PATIENT
  Age: 51 Year
  Sex: Male

DRUGS (3)
  1. KEYTRUDA [Suspect]
     Active Substance: PEMBROLIZUMAB
     Indication: Oropharyngeal cancer stage IV
     Dosage: 200 MILLIGRAM, Q3W
     Route: 041
     Dates: start: 20210602, end: 20210602
  2. CISPLATIN [Suspect]
     Active Substance: CISPLATIN
     Indication: Oropharyngeal cancer stage IV
     Dosage: 100 MILLIGRAM, Q3W
     Route: 041
     Dates: start: 202106, end: 202107
  3. FLUOROURACIL [Suspect]
     Active Substance: FLUOROURACIL
     Indication: Oropharyngeal cancer stage IV
     Dosage: 1000 MILLIGRAM, QD(AFTER CONTINUOUS INTRAVENOUS INFUSION FOR 4 DAYS, DRUG SUSPENSION FOR 17 DAYS)
     Route: 041
     Dates: start: 202106, end: 202107

REACTIONS (5)
  - Pneumonia staphylococcal [Fatal]
  - Central venous catheterisation [Unknown]
  - Sepsis [Recovering/Resolving]
  - Enterocolitis [Recovering/Resolving]
  - Febrile neutropenia [Recovering/Resolving]

NARRATIVE: CASE EVENT DATE: 20210101
